FAERS Safety Report 19635547 (Version 2)
Quarter: 2021Q4

REPORT INFORMATION
  Report Type: Spontaneous
  Country: DE (occurrence: DE)
  Receive Date: 20210730
  Receipt Date: 20211011
  Transmission Date: 20220303
  Serious: Yes (Other)
  Sender: FDA-Public Use
  Company Number: NVSC2021DE171101

PATIENT

DRUGS (2)
  1. ASPIRIN [Suspect]
     Active Substance: ASPIRIN
     Indication: Foetal exposure during pregnancy
     Dosage: MOTHER DOSE: UNKNOWN
     Route: 064
  2. INTRON A [Suspect]
     Active Substance: INTERFERON ALFA-2B
     Indication: Foetal exposure during pregnancy
     Dosage: MOTHER DOSE: (3 MIO, IE/D)
     Route: 064

REACTIONS (2)
  - Premature baby [Unknown]
  - Foetal exposure during pregnancy [Unknown]
